FAERS Safety Report 8199709-6 (Version None)
Quarter: 2012Q1

REPORT INFORMATION
  Report Type: 
  Country: None (occurrence: None)
  Receive Date: 20120311
  Receipt Date: 20120227
  Transmission Date: 20120608
  Serious: Yes (Disabling, Other)
  Sender: FDA-Public Use
  Company Number: US-MYLANLABS-2012S1004507

PATIENT
  Sex: Male

DRUGS (6)
  1. FLUPHENAZINE [Suspect]
     Indication: MENTAL DISORDER
  2. SEROQUEL [Suspect]
     Indication: MENTAL DISORDER
  3. FLUPHENAZINE [Suspect]
     Indication: ANXIETY DISORDER
  4. SEROQUEL [Suspect]
     Indication: ANXIETY DISORDER
  5. PROLIXIN [Suspect]
     Indication: MENTAL DISORDER
  6. PROLIXIN [Suspect]
     Indication: ANXIETY DISORDER

REACTIONS (11)
  - HYPERSENSITIVITY [None]
  - TARDIVE DYSKINESIA [None]
  - CARDIAC DISORDER [None]
  - DRUG INTERACTION [None]
  - OVERDOSE [None]
  - BRAIN INJURY [None]
  - MYOCARDIAL INFARCTION [None]
  - NERVOUS SYSTEM DISORDER [None]
  - MENTAL DISABILITY [None]
  - MENTAL IMPAIRMENT [None]
  - NEUROLEPTIC MALIGNANT SYNDROME [None]
